FAERS Safety Report 10533147 (Version 1)
Quarter: 2014Q4

REPORT INFORMATION
  Report Type: Spontaneous
  Country: IE (occurrence: IE)
  Receive Date: 20141022
  Receipt Date: 20141022
  Transmission Date: 20150529
  Serious: Yes (Other)
  Sender: FDA-Public Use
  Company Number: IE-JNJFOC-20141009020

PATIENT
  Age: 10 Year
  Sex: Male

DRUGS (2)
  1. CALPOL [Suspect]
     Active Substance: ACETAMINOPHEN
     Indication: TEETHING
     Route: 065
  2. CALPOL [Suspect]
     Active Substance: ACETAMINOPHEN
     Indication: PYREXIA
     Route: 065

REACTIONS (1)
  - Coeliac disease [Unknown]
